FAERS Safety Report 10712622 (Version 1)
Quarter: 2015Q1

REPORT INFORMATION
  Report Type: Report from Study
  Country: US (occurrence: US)
  Receive Date: 20150115
  Receipt Date: 20150115
  Transmission Date: 20150721
  Serious: Yes (Hospitalization)
  Sender: FDA-Public Use
  Company Number: US-BIOGENIDEC-2014BI117504

PATIENT
  Age: 48 Year
  Sex: Female

DRUGS (2)
  1. TECFIDERA [Suspect]
     Active Substance: DIMETHYL FUMARATE
     Indication: MULTIPLE SCLEROSIS
     Route: 048
     Dates: start: 20141028
  2. TECFIDERA [Suspect]
     Active Substance: DIMETHYL FUMARATE
     Indication: MULTIPLE SCLEROSIS
     Route: 048
     Dates: start: 20141021, end: 20141027

REACTIONS (8)
  - Dyspepsia [Unknown]
  - Diarrhoea [Unknown]
  - Abasia [Unknown]
  - Faecal incontinence [Unknown]
  - Nausea [Unknown]
  - Pruritus [Unknown]
  - Loss of control of legs [Unknown]
  - Flushing [Unknown]

NARRATIVE: CASE EVENT DATE: 20141021
